FAERS Safety Report 6272463-0 (Version None)
Quarter: 2009Q3

REPORT INFORMATION
  Report Type: 
  Country: None (occurrence: None)
  Receive Date: 20090715
  Receipt Date: 20090707
  Transmission Date: 20100115
  Serious: Yes (Hospitalization)
  Sender: FDA-Public Use
  Company Number: CHPA2009US14885

PATIENT
  Age: 37 Year
  Sex: Male

DRUGS (2)
  1. VOLTAREN [Suspect]
     Indication: OSTEOARTHRITIS
     Dosage: UNK TOPICAL
     Route: 061
     Dates: start: 20090707, end: 20090707
  2. ALL OTHER THERAPEUTIC PRODUCTS (NO INGREDIENTS/SUBSTANCES) [Concomitant]

REACTIONS (7)
  - ASTHENIA [None]
  - ELECTROLYTE IMBALANCE [None]
  - HEART RATE INCREASED [None]
  - INCORRECT DOSE ADMINISTERED [None]
  - NERVOUSNESS [None]
  - POLYDIPSIA [None]
  - WRONG TECHNIQUE IN DRUG USAGE PROCESS [None]
